FAERS Safety Report 9351547 (Version 3)
Quarter: 2013Q3

REPORT INFORMATION
  Report Type: Spontaneous
  Country: BR (occurrence: BR)
  Receive Date: 20130617
  Receipt Date: 20130716
  Transmission Date: 20140515
  Serious: Yes (Other)
  Sender: FDA-Public Use
  Company Number: PHHY2013BR060936

PATIENT
  Age: 57 Year
  Sex: Male

DRUGS (3)
  1. DIOVAN [Suspect]
     Indication: HYPERTENSION
     Dosage: 1 DF, (160 MG) DAILY
     Route: 048
  2. DIOVAN [Suspect]
     Dosage: 2 DF, (160 MG) DAILY
     Route: 048
  3. APRESOLIN [Suspect]
     Indication: HYPERTENSION
     Dosage: 3 DF, (25 MG) DAILY
     Route: 048

REACTIONS (3)
  - Blood pressure increased [Recovered/Resolved]
  - Fluid retention [Not Recovered/Not Resolved]
  - Local swelling [Not Recovered/Not Resolved]
